FAERS Safety Report 21669565 (Version 3)
Quarter: 2023Q1

REPORT INFORMATION
  Report Type: Report from Study
  Country: US (occurrence: None)
  Receive Date: 20221201
  Receipt Date: 20230214
  Transmission Date: 20230418
  Serious: Yes (Hospitalization)
  Sender: FDA-Public Use
  Company Number: US-Merck Healthcare KGaA-9368187

PATIENT
  Age: 48 Year
  Sex: Female

DRUGS (2)
  1. MAVENCLAD [Suspect]
     Active Substance: CLADRIBINE
     Indication: Multiple sclerosis
     Dosage: YEAR ONE MONTH ONE THERAPY
     Route: 048
     Dates: start: 20220314
  2. MAVENCLAD [Suspect]
     Active Substance: CLADRIBINE
     Dosage: YEAR ONE MONTH TWO THERAPY
     Route: 048
     Dates: end: 20220415

REACTIONS (1)
  - Carotid artery dissection [Unknown]

NARRATIVE: CASE EVENT DATE: 20221101
